FAERS Safety Report 23230412 (Version 1)
Quarter: 2023Q4

REPORT INFORMATION
  Report Type: Spontaneous
  Country: US (occurrence: US)
  Receive Date: 20231127
  Receipt Date: 20231127
  Transmission Date: 20240110
  Serious: No
  Sender: FDA-Public Use
  Company Number: US-002147023-NVSC2023US161801

PATIENT
  Sex: Female

DRUGS (6)
  1. BENZOYL PEROXIDE [Suspect]
     Active Substance: BENZOYL PEROXIDE
     Indication: Hidradenitis
     Dosage: UNK
     Route: 065
     Dates: start: 2021, end: 2022
  2. CLINDAMYCIN [Suspect]
     Active Substance: CLINDAMYCIN
     Indication: Hidradenitis
     Dosage: UNK
     Route: 065
     Dates: start: 2022, end: 2023
  3. CLOBETASOL [Suspect]
     Active Substance: CLOBETASOL
     Indication: Psoriasis
     Dosage: UNK
     Route: 065
     Dates: start: 2019, end: 2023
  4. DOXYCYCLINE [Suspect]
     Active Substance: DOXYCYCLINE
     Indication: Hidradenitis
     Dosage: UNK
     Route: 065
     Dates: start: 2021, end: 2023
  5. MUPIROCIN [Suspect]
     Active Substance: MUPIROCIN
     Indication: Hidradenitis
     Dosage: UNK
     Route: 065
     Dates: start: 2023, end: 2023
  6. TRIAMCINOLONE [Suspect]
     Active Substance: TRIAMCINOLONE
     Indication: Hidradenitis
     Dosage: UNK
     Route: 065

REACTIONS (3)
  - Arthralgia [Unknown]
  - Cyst [Unknown]
  - Drug ineffective [Unknown]
